FAERS Safety Report 14576831 (Version 1)
Quarter: 2018Q1

REPORT INFORMATION
  Report Type: Spontaneous
  Country: JP (occurrence: JP)
  Receive Date: 20180227
  Receipt Date: 20180227
  Transmission Date: 20180509
  Serious: Yes (Hospitalization, Other)
  Sender: FDA-Public Use
  Company Number: JP-TELIGENT, INC-IGIL20180091

PATIENT
  Age: 75 Year
  Sex: Male

DRUGS (1)
  1. TRIAMCINOLONE ACETONIDE. [Suspect]
     Active Substance: TRIAMCINOLONE ACETONIDE
     Indication: MACULAR OEDEMA
     Dosage: UNKNOWN
     Route: 031

REACTIONS (10)
  - Eye pain [Unknown]
  - Eyelid oedema [Unknown]
  - Eye inflammation [Unknown]
  - Choroidal detachment [Unknown]
  - Eye abscess [Recovered/Resolved]
  - Anterior chamber cell [Unknown]
  - Scedosporium infection [Recovered/Resolved]
  - Ocular hyperaemia [Unknown]
  - Infective scleritis [Recovered/Resolved]
  - Ciliary hyperaemia [Recovered/Resolved]
